FAERS Safety Report 25564059 (Version 1)
Quarter: 2025Q3

REPORT INFORMATION
  Report Type: Spontaneous
  Country: US (occurrence: US)
  Receive Date: 20250716
  Receipt Date: 20250716
  Transmission Date: 20251021
  Serious: No
  Sender: NOVO NORDISK
  Company Number: US-NOVOPROD-1358299

PATIENT
  Age: 34 Year
  Sex: Female

DRUGS (1)
  1. OZEMPIC [Suspect]
     Active Substance: SEMAGLUTIDE
     Indication: Type 2 diabetes mellitus
     Dosage: 2 MG, QW
     Route: 058
     Dates: start: 20241130

REACTIONS (5)
  - Hunger [Recovered/Resolved]
  - Vision blurred [Recovered/Resolved]
  - Injection site bruising [Recovered/Resolved]
  - Injection site haemorrhage [Recovered/Resolved]
  - Product contamination with body fluid [Recovered/Resolved]

NARRATIVE: CASE EVENT DATE: 20241130
